FAERS Safety Report 23113885 (Version 1)
Quarter: 2023Q4

REPORT INFORMATION
  Report Type: Spontaneous
  Country: CO (occurrence: CO)
  Receive Date: 20231027
  Receipt Date: 20231027
  Transmission Date: 20240110
  Serious: Yes (Other)
  Sender: FDA-Public Use
  Company Number: CO-TAKEDA-2023TUS103787

PATIENT
  Age: 68 Year
  Sex: Male

DRUGS (1)
  1. ENTYVIO [Suspect]
     Active Substance: VEDOLIZUMAB
     Indication: Product used for unknown indication
     Dosage: UNK UNK, Q6WEEKS
     Route: 065

REACTIONS (4)
  - Clostridium difficile infection [Unknown]
  - Drug effect less than expected [Unknown]
  - Off label use [Unknown]
  - Urinary tract infection [Unknown]
